FAERS Safety Report 14851800 (Version 1)
Quarter: 2018Q2

REPORT INFORMATION
  Report Type: Spontaneous
  Country: IN (occurrence: IN)
  Receive Date: 20180507
  Receipt Date: 20180507
  Transmission Date: 20180711
  Serious: Yes (Hospitalization, Other)
  Sender: FDA-Public Use
  Company Number: IN-AXELLIA-001643

PATIENT
  Age: 59 Year
  Sex: Female

DRUGS (6)
  1. CILNIDIPINE [Concomitant]
     Active Substance: CILNIDIPINE
     Indication: HYPERTENSION
  2. CLONIDINE. [Concomitant]
     Active Substance: CLONIDINE
     Indication: HYPERTENSION
  3. PANTOPRAZOLE [Concomitant]
     Active Substance: PANTOPRAZOLE
  4. COLISTIN [Suspect]
     Active Substance: COLISTIN
     Indication: KLEBSIELLA INFECTION
     Dosage: LOADING DOSE OF 6 MILLION UNIT AND 2 MILLION UNITS THRICE DAILY DOSE
     Route: 042
  5. SULFAMETHOXAZOLE/TRIMETHOPRIM [Concomitant]
     Indication: KLEBSIELLA INFECTION
     Dosage: 1 AMPULE
     Route: 042
  6. PRAZOSIN. [Concomitant]
     Active Substance: PRAZOSIN
     Indication: HYPERTENSION

REACTIONS (1)
  - Myasthenic syndrome [Recovered/Resolved]
